FAERS Safety Report 14311428 (Version 1)
Quarter: 2017Q4

REPORT INFORMATION
  Report Type: Spontaneous
  Country: AT (occurrence: AT)
  Receive Date: 20171221
  Receipt Date: 20171221
  Transmission Date: 20180321
  Serious: Yes (Other)
  Sender: FDA-Public Use
  Company Number: AT-CIPLA LTD.-2017AT23835

PATIENT

DRUGS (7)
  1. XEPLION [Suspect]
     Active Substance: PALIPERIDONE PALMITATE
     Dosage: 150 MG, UNK
     Route: 030
  2. LEPONEX [Concomitant]
     Active Substance: CLOZAPINE
     Dosage: 75 MG, UNK
     Route: 065
  3. LEPONEX [Concomitant]
     Active Substance: CLOZAPINE
     Dosage: 50 MG, UNK
     Route: 065
  4. RISPERIDONE. [Suspect]
     Active Substance: RISPERIDONE
     Indication: PRODUCT USED FOR UNKNOWN INDICATION
     Dosage: 2.5 MG, UNK
     Route: 065
  5. XEPLION [Suspect]
     Active Substance: PALIPERIDONE PALMITATE
     Indication: PRODUCT USED FOR UNKNOWN INDICATION
     Dosage: 100 MG, UNK
     Route: 030
  6. LEPONEX [Concomitant]
     Active Substance: CLOZAPINE
     Dosage: UNK
     Route: 065
  7. XEPLION [Suspect]
     Active Substance: PALIPERIDONE PALMITATE
     Dosage: 100 MG, UNK
     Route: 030

REACTIONS (2)
  - Dysuria [Unknown]
  - Persistent genital arousal disorder [Unknown]

NARRATIVE: CASE EVENT DATE: 201503
